FAERS Safety Report 6460824-6 (Version None)
Quarter: 2009Q4

REPORT INFORMATION
  Report Type: 
  Country: None (occurrence: None)
  Receive Date: 20091130
  Receipt Date: 20091117
  Transmission Date: 20100525
  Serious: Yes (Other)
  Sender: FDA-Public Use
  Company Number: CA-ASTRAZENECA-2009SE27974

PATIENT
  Age: 48 Year
  Sex: Female

DRUGS (14)
  1. CRESTOR [Suspect]
     Route: 048
  2. HYDROXYETHYLCELLULOSE  AQUEOUS GEL [Concomitant]
  3. HYDROCORTISONE 1% IN VERSABASE CREAM [Concomitant]
  4. BI-EST2.5MG/ML IN VERBASE CREAM [Concomitant]
  5. PROGESTERONE (SOYA) [Concomitant]
     Dosage: 100 MG/ML IN VERBASE
  6. CLOTRIMAZOLE [Concomitant]
     Dosage: 1 % IN VERSABASE
  7. APO-FLUCONAZOLE [Concomitant]
  8. DOXYCYCLINE HYCLATE [Concomitant]
     Dosage: 100 MG DYE FREE CAPSULES
  9. THYROID TAB [Concomitant]
  10. TESTOSTERONE [Concomitant]
     Dosage: 8 MG/ML IN VERSABASE CREAM
  11. FOSAVANCE [Concomitant]
  12. VITAMIN E [Concomitant]
     Dosage: 200 IU IN VERSABASE CREAM
  13. ULTRA FORTE PLUS B [Concomitant]
     Dosage: 1/3 TABLESPOON
  14. UDO [Concomitant]

REACTIONS (1)
  - DYSPNOEA [None]
